FAERS Safety Report 10101924 (Version 1)
Quarter: 2014Q2

REPORT INFORMATION
  Report Type: Report from Study
  Country: US (occurrence: US)
  Receive Date: 20140424
  Receipt Date: 20140424
  Transmission Date: 20141212
  Serious: Yes (Other)
  Sender: FDA-Public Use
  Company Number: PHEH2014US007996

PATIENT
  Sex: Female
  Weight: 72.56 kg

DRUGS (10)
  1. TASIGNA [Suspect]
     Indication: CHRONIC MYELOID LEUKAEMIA
     Dosage: 150 MG, 4 DAYS A WEEK
     Route: 048
     Dates: start: 20101227
  2. MVI [Concomitant]
  3. FISH OIL [Concomitant]
  4. SIMVASTATIN [Concomitant]
  5. ACTOS [Concomitant]
  6. GLYBURIDE [Concomitant]
  7. CILOSTAZOL [Concomitant]
  8. METFORMIN [Concomitant]
  9. HYZAAR [Concomitant]
  10. ATENOLOL [Concomitant]

REACTIONS (1)
  - Diabetes mellitus [Unknown]
